FAERS Safety Report 8429081-5 (Version None)
Quarter: 2012Q2

REPORT INFORMATION
  Report Type: 
  Country: None (occurrence: None)
  Receive Date: 20120612
  Receipt Date: 20120605
  Transmission Date: 20120825
  Serious: Yes (Disabling)
  Sender: FDA-Public Use
  Company Number: FR-SANOFI-AVENTIS-2012SA012763

PATIENT
  Age: 68 Year
  Sex: Male
  Weight: 68 kg

DRUGS (4)
  1. RIFAMPIN AND ISONIAZID [Suspect]
     Indication: TUBERCULOSIS
     Dosage: DOSE:9 UNIT(S)
     Route: 048
     Dates: start: 20110801, end: 20111001
  2. CRESTOR [Concomitant]
     Route: 048
     Dates: start: 20070101
  3. BUDESONIDE/FORMOTEROL [Concomitant]
     Dates: start: 20070101
  4. RIFAMPIN AND ISONIAZID [Suspect]
     Dosage: DOSE: 2 CP
     Route: 048
     Dates: start: 20111101, end: 20120201

REACTIONS (3)
  - LOOSE TOOTH [None]
  - TOOTH DISCOLOURATION [None]
  - TOOTH FRACTURE [None]
